FAERS Safety Report 4352248-2 (Version None)
Quarter: 2004Q2

REPORT INFORMATION
  Report Type: 
  Country: None (occurrence: None)
  Receive Date: 20040419
  Receipt Date: 20040112
  Transmission Date: 20050107
  Serious: No
  Sender: FDA-Public Use
  Company Number: 04P-163-0247377-00

PATIENT
  Age: 21 Day
  Sex: 0

DRUGS (1)
  1. CYCLOSPORINE [Suspect]
     Indication: IMMUNOSUPPRESSION
     Dosage: 21 MG/KG, RECEIVED 2 DOSES 8 HOURS APART, ORAL
     Route: 048

REACTIONS (1)
  - OVERDOSE [None]
